FAERS Safety Report 6731624-4 (Version None)
Quarter: 2010Q2

REPORT INFORMATION
  Report Type: 
  Country: None (occurrence: None)
  Receive Date: 20100518
  Receipt Date: 20100518
  Transmission Date: 20101027
  Serious: Yes (Hospitalization)
  Sender: FDA-Public Use
  Company Number: None

PATIENT
  Age: 86 Year
  Sex: Female

DRUGS (9)
  1. PHENYTOIN [Suspect]
     Indication: CONVULSION
     Dosage: 100MG TID PO
     Route: 048
  2. FERROUS SULFATE TAB [Concomitant]
  3. LASIX [Concomitant]
  4. NOVOLIN [Concomitant]
  5. PLAVIX [Concomitant]
  6. K-DUR [Concomitant]
  7. ZANTAC [Concomitant]
  8. VIT B1 [Concomitant]
  9. VIT D [Concomitant]

REACTIONS (1)
  - COMA [None]
